APPROVED DRUG PRODUCT: METOCLOPRAMIDE HYDROCHLORIDE
Active Ingredient: METOCLOPRAMIDE HYDROCHLORIDE
Strength: EQ 10MG BASE/2ML
Dosage Form/Route: INJECTABLE;INJECTION
Application: A070892 | Product #001
Applicant: NORBROOK LABORATORIES LTD
Approved: Aug 26, 1988 | RLD: No | RS: No | Type: DISCN